FAERS Safety Report 10037127 (Version 1)
Quarter: 2014Q1

REPORT INFORMATION
  Report Type: Spontaneous
  Country: US (occurrence: None)
  Receive Date: 20140325
  Receipt Date: 20140325
  Transmission Date: 20141002
  Serious: Yes (Life-Threatening, Hospitalization)
  Sender: FDA-Public Use
  Company Number: None

PATIENT
  Age: 81 Year
  Sex: Male
  Weight: 85.28 kg

DRUGS (7)
  1. XARELTO [Suspect]
     Indication: HYPERTENSION
     Route: 048
     Dates: start: 20140120, end: 20140124
  2. LISINOPRIL [Concomitant]
  3. DILTIAZEM [Concomitant]
  4. CLOPIDAGRIL [Concomitant]
  5. TAMSULOSIN HCL [Concomitant]
  6. OMEGA 3 [Concomitant]
  7. HEART SUPPLEMENTS [Concomitant]

REACTIONS (2)
  - Heart rate increased [None]
  - Nervous system disorder [None]
